FAERS Safety Report 25811847 (Version 1)
Quarter: 2025Q3

REPORT INFORMATION
  Report Type: Other
  Country: MD (occurrence: MD)
  Receive Date: 20250917
  Receipt Date: 20250917
  Transmission Date: 20251021
  Serious: Yes (Hospitalization)
  Sender: MACLEODS
  Company Number: MD-MACLEODS PHARMA-MAC2025055223

PATIENT

DRUGS (9)
  1. PYRAZINAMIDE [Suspect]
     Active Substance: PYRAZINAMIDE
     Indication: Pulmonary tuberculosis
     Route: 048
     Dates: start: 20250301, end: 20250302
  2. ISONIAZID [Suspect]
     Active Substance: ISONIAZID
     Indication: Pulmonary tuberculosis
     Route: 048
     Dates: start: 20250301, end: 20250302
  3. RIFAPENTINE [Suspect]
     Active Substance: RIFAPENTINE
     Indication: Pulmonary tuberculosis
     Dosage: LUPIN LTD, INDIA
     Route: 048
     Dates: start: 20250301, end: 20250302
  4. MOXIFLOXACIN HYDROCHLORIDE [Suspect]
     Active Substance: MOXIFLOXACIN HYDROCHLORIDE
     Indication: Pulmonary tuberculosis
     Dosage: MOXICUM (DRSERTUS ILAC SANAYI VE TICARET LIMITED SIRKETI, TURCIA)
     Route: 048
     Dates: start: 20250301, end: 20250302
  5. Silimarina [Concomitant]
     Indication: Hepatitis
     Route: 065
     Dates: start: 20250301
  6. Hepaurs [Concomitant]
     Indication: Hepatitis
     Route: 065
     Dates: start: 20250305
  7. ARGININE [Concomitant]
     Active Substance: ARGININE
     Indication: Hepatitis
     Route: 042
     Dates: start: 20250308, end: 20250310
  8. Hepasol Neo [Concomitant]
     Indication: Hepatitis
     Dosage: SOL. HEPASOL NEO
     Route: 042
     Dates: start: 20250311, end: 20250312
  9. Aminoplasmal Hepa [Concomitant]
     Indication: Hepatitis
     Dosage: SOL. AMINOPLASMAL HEPA 250 ML
     Route: 042
     Dates: start: 20250314, end: 20250315

REACTIONS (1)
  - Drug-induced liver injury [Recovered/Resolved]

NARRATIVE: CASE EVENT DATE: 20250228
